FAERS Safety Report 4608043-X (Version None)
Quarter: 2005Q2

REPORT INFORMATION
  Report Type: 
  Country: None (occurrence: None)
  Receive Date: 20050303
  Receipt Date: 20041118
  Transmission Date: 20051028
  Serious: No
  Sender: FDA-Public Use
  Company Number: 210603

PATIENT
  Age: 25 Year
  Sex: Female
  Weight: 63.5 kg

DRUGS (6)
  1. XOLAIR [Suspect]
     Indication: ASTHMA
     Dosage: 375MG, QW2, SUBCUTANEOUS
     Route: 058
     Dates: start: 20041001
  2. ADVAIR (SALMETEROL XINAFOATE, FLUTICASONE PROPIONATE) [Concomitant]
  3. SINGULAIR [Concomitant]
  4. ZYTREC (CETIRIZINE HYDROCHLORIDE) [Concomitant]
  5. ALLEGRA [Concomitant]
  6. FLONASE [Concomitant]

REACTIONS (1)
  - URTICARIA GENERALISED [None]
